FAERS Safety Report 24443667 (Version 2)
Quarter: 2024Q4

REPORT INFORMATION
  Report Type: Report from Study
  Country: US (occurrence: US)
  Receive Date: 20241016
  Receipt Date: 20241017
  Transmission Date: 20250115
  Serious: No
  Sender: ROCHE
  Company Number: US-ROCHE-1959590

PATIENT
  Age: 58 Year
  Sex: Female

DRUGS (5)
  1. RITUXAN [Suspect]
     Active Substance: RITUXIMAB
     Indication: Polymyositis
     Dosage: DATE OF TREATMENT: 19/DEC/2014, 16/JAN/2015, 25/SEP/2015, 06/DEC/2018 AND 28/MAY/2019? FREQUENCY TEX
     Route: 042
  2. RITUXAN [Suspect]
     Active Substance: RITUXIMAB
     Indication: Interstitial lung disease
  3. RITUXAN [Suspect]
     Active Substance: RITUXIMAB
     Indication: Overlap syndrome
  4. RITUXAN [Suspect]
     Active Substance: RITUXIMAB
     Indication: Immune system disorder
  5. MYCOPHENOLATE MOFETIL [Concomitant]
     Active Substance: MYCOPHENOLATE MOFETIL
     Dosage: 3 TABLET

REACTIONS (2)
  - Off label use [Unknown]
  - No adverse event [Unknown]
